FAERS Safety Report 7943369-3 (Version None)
Quarter: 2011Q4

REPORT INFORMATION
  Report Type: 
  Country: None (occurrence: None)
  Receive Date: 20111128
  Receipt Date: 20111118
  Transmission Date: 20120403
  Serious: Yes (Hospitalization)
  Sender: FDA-Public Use
  Company Number: US-BAYER-201035094NA

PATIENT
  Age: 42 Year
  Sex: Female
  Weight: 70.295 kg

DRUGS (2)
  1. YASMIN [Suspect]
     Indication: PREMENSTRUAL SYNDROME
     Dosage: UNK
     Route: 048
     Dates: start: 20011201, end: 20021101
  2. MACROBID [Concomitant]
     Dosage: UNK
     Dates: start: 20020901

REACTIONS (4)
  - MYOCARDIAL INFARCTION [None]
  - DEPRESSION [None]
  - CEREBROVASCULAR ACCIDENT [None]
  - ANXIETY [None]
